FAERS Safety Report 7489490-8 (Version None)
Quarter: 2011Q2

REPORT INFORMATION
  Report Type: 
  Country: None (occurrence: None)
  Receive Date: 20110518
  Receipt Date: 20100705
  Transmission Date: 20111010
  Serious: Yes (Other)
  Sender: FDA-Public Use
  Company Number: DE-GENENTECH-318621

PATIENT
  Sex: Male

DRUGS (2)
  1. EYE DROPS NOS [Concomitant]
     Indication: PRODUCT USED FOR UNKNOWN INDICATION
     Dosage: UNK
  2. LUCENTIS [Suspect]
     Indication: MACULAR DEGENERATION
     Dosage: UNK
     Route: 031
     Dates: start: 20100624

REACTIONS (3)
  - EYE HAEMORRHAGE [None]
  - RETINAL SCAR [None]
  - INTRAOCULAR PRESSURE INCREASED [None]
